FAERS Safety Report 8629919 (Version 3)
Quarter: 2012Q4

REPORT INFORMATION
  Report Type: 
  Country: JO (occurrence: JO)
  Receive Date: 20120622
  Receipt Date: 20121114
  Transmission Date: 20130627
  Serious: Yes (Life-Threatening)
  Sender: FDA-Public Use
  Company Number: JO-SANOFI-AVENTIS-2012SA042180

PATIENT
  Age: 48 Year
  Sex: Female
  Weight: 60 kg

DRUGS (5)
  1. CLEXANE [Suspect]
     Indication: PROPHYLAXIS
     Route: 058
     Dates: start: 20120520, end: 20120520
  2. MORPHINE [Concomitant]
     Indication: PAIN
     Dosage: Dose: PCA (Patient Controlled Analgesia)
     Route: 042
  3. PLASIL [Concomitant]
     Indication: NAUSEA
     Route: 042
  4. PARACETAMOL [Concomitant]
     Indication: PAIN
     Route: 042
  5. CEFTRIAXONE [Concomitant]
     Indication: DRUG USE FOR UNKNOWN INDICATION
     Route: 065

REACTIONS (4)
  - Supraventricular tachycardia [Recovered/Resolved]
  - Dizziness [Recovered/Resolved]
  - Palpitations [Recovered/Resolved]
  - Hypotension [Recovered/Resolved]
